FAERS Safety Report 13100195 (Version 2)
Quarter: 2017Q1

REPORT INFORMATION
  Report Type: Report from Study
  Country: BR (occurrence: BR)
  Receive Date: 20170110
  Receipt Date: 20170120
  Transmission Date: 20170428
  Serious: Yes (Life-Threatening, Hospitalization, Other)
  Sender: FDA-Public Use
  Company Number: BR-ASTRAZENECA-2017SE00291

PATIENT
  Sex: Female
  Weight: 62 kg

DRUGS (2)
  1. PORAN [Concomitant]
     Route: 065
  2. TAGRISSO [Suspect]
     Active Substance: OSIMERTINIB
     Indication: LUNG NEOPLASM MALIGNANT
     Dosage: 80 MG
     Route: 048
     Dates: start: 20160530, end: 20161229

REACTIONS (4)
  - Cardiac failure [Recovering/Resolving]
  - Hypovolaemic shock [Unknown]
  - Haemothorax [Recovering/Resolving]
  - Malignant neoplasm progression [Not Recovered/Not Resolved]

NARRATIVE: CASE EVENT DATE: 20160102
